FAERS Safety Report 8811358 (Version 1)
Quarter: 2012Q4

REPORT INFORMATION
  Report Type: 
  Country: DE (occurrence: DE)
  Receive Date: 20120927
  Receipt Date: 20120927
  Transmission Date: 20130627
  Serious: Yes (Hospitalization)
  Sender: FDA-Public Use
  Company Number: DE-PFIZER INC-2012234869

PATIENT
  Age: 73 Year
  Sex: Female
  Weight: 71.3 kg

DRUGS (5)
  1. GENOTROPIN [Suspect]
     Dosage: 0.4 mg, 1x/day, 7 injections/week
     Route: 058
     Dates: start: 20090716, end: 20100430
  2. L-THYROXINE [Concomitant]
     Indication: HYPOTHYROIDISM
     Dosage: UNK
     Dates: start: 20080909
  3. HYDROCORTISONE [Concomitant]
     Indication: ADRENAL INSUFFICIENCY
     Dosage: UNK
     Dates: start: 20080916
  4. METOPROLOL [Concomitant]
     Indication: HYPERTENSION
     Dosage: UNK
     Dates: start: 20090925
  5. PROVAS COMP [Concomitant]
     Indication: HYPERTENSION
     Dosage: UNK
     Dates: start: 20090925

REACTIONS (1)
  - Laryngeal disorder [Unknown]
